FAERS Safety Report 8542846-4 (Version None)
Quarter: 2012Q3

REPORT INFORMATION
  Report Type: 
  Country: None (occurrence: None)
  Receive Date: 20120727
  Receipt Date: 20120719
  Transmission Date: 20120928
  Serious: No
  Sender: FDA-Public Use
  Company Number: US-BIOGENIDEC-2012BI026499

PATIENT
  Sex: Male

DRUGS (2)
  1. AVONEX [Suspect]
     Indication: MULTIPLE SCLEROSIS
     Route: 030
     Dates: start: 20071015, end: 20120601
  2. AVONEX [Suspect]
     Route: 030
     Dates: start: 20120716

REACTIONS (5)
  - INFLUENZA LIKE ILLNESS [None]
  - WEIGHT DECREASED [None]
  - CHOLELITHIASIS [None]
  - DECREASED APPETITE [None]
  - BACK PAIN [None]
